FAERS Safety Report 5484046-0 (Version None)
Quarter: 2007Q4

REPORT INFORMATION
  Report Type: 
  Country: None (occurrence: None)
  Receive Date: 20071009
  Receipt Date: 20071009
  Transmission Date: 20080405
  Serious: Yes (Hospitalization)
  Sender: FDA-Public Use
  Company Number: None

PATIENT
  Age: 64 Year
  Sex: Male

DRUGS (1)
  1. HEPARIN [Suspect]
     Indication: THROMBOSIS PROPHYLAXIS
     Dosage: 5000UNITS TID SQ
     Route: 058
     Dates: start: 20070609, end: 20070618

REACTIONS (2)
  - THROMBOCYTOPENIA [None]
  - THROMBOSIS [None]
